FAERS Safety Report 5580999-0 (Version None)
Quarter: 2007Q4

REPORT INFORMATION
  Report Type: 
  Country: None (occurrence: None)
  Receive Date: 20071130
  Receipt Date: 20070710
  Transmission Date: 20080405
  Serious: No
  Sender: FDA-Public Use
  Company Number: US200707002747

PATIENT
  Age: 81 Year
  Sex: Female
  Weight: 40.4 kg

DRUGS (1)
  1. BYETTA [Suspect]
     Indication: TYPE 2 DIABETES MELLITUS
     Dosage: 5 UG, 2/D, SUBCUTANEOUS
     Route: 058
     Dates: start: 20070601

REACTIONS (4)
  - BLOOD GLUCOSE INCREASED [None]
  - GASTRIC ULCER [None]
  - NAUSEA [None]
  - WEIGHT DECREASED [None]
